FAERS Safety Report 21482252 (Version 6)
Quarter: 2022Q4

REPORT INFORMATION
  Report Type: Other
  Country: GB (occurrence: GB)
  Receive Date: 20221020
  Receipt Date: 20221215
  Transmission Date: 20230113
  Serious: Yes (Congenital Anomaly, Other)
  Sender: FDA-Public Use
  Company Number: GB-MACLEODS PHARMA EU LTD-MAC2022037850

PATIENT

DRUGS (13)
  1. EMTRICITABINE\TENOFOVIR DISOPROXIL [Suspect]
     Active Substance: EMTRICITABINE\TENOFOVIR DISOPROXIL
     Indication: Product used for unknown indication
     Dosage: 1 DOSAGE FORM, QD (1 COURSES, EXPOSURE NO PRIOR TO CONCEPTION AND DURING FIRST TRIMESTER, ONGOING AT
     Route: 064
     Dates: start: 20210719
  2. EMTRICITABINE\TENOFOVIR DISOPROXIL [Suspect]
     Active Substance: EMTRICITABINE\TENOFOVIR DISOPROXIL
     Dosage: 1 DOSAGE FORM, QD, 1 TAB/CAPS (FILM COATED TABLET)
     Route: 064
     Dates: start: 20210719
  3. TENOFOVIR [Suspect]
     Active Substance: TENOFOVIR
     Indication: Product used for unknown indication
     Dosage: UNK
     Route: 064
     Dates: start: 20210707
  4. EMTRICITABINE [Suspect]
     Active Substance: EMTRICITABINE
     Indication: Product used for unknown indication
     Dosage: UNK
     Route: 064
  5. RITONAVIR [Suspect]
     Active Substance: RITONAVIR
     Indication: Product used for unknown indication
     Dosage: 100 MILLIGRAM, QD ( 1 COURSES, EXPOSURE NO PRIOR TO CONCEPTION AND DURING THIRD TRIMESTER, ONGOING A
     Route: 064
     Dates: start: 20211229
  6. RITONAVIR [Suspect]
     Active Substance: RITONAVIR
     Dosage: UNK
     Route: 064
     Dates: start: 20211221
  7. STRIBILD [Suspect]
     Active Substance: COBICISTAT\ELVITEGRAVIR\EMTRICITABINE\TENOFOVIR DISOPROXIL FUMARATE
     Indication: Product used for unknown indication
     Dosage: 1 DOSAGE FORM, QD (1 COURSES, EXPOSURE PRIOR TO CONCEPTION AND DURING FIRST TRIMESTER) (END DATE 18
     Route: 064
     Dates: start: 20210618
  8. TIVICAY [Suspect]
     Active Substance: DOLUTEGRAVIR SODIUM
     Indication: Product used for unknown indication
     Dosage: 50 MILLIGRAM, QD (1 COURSES, EXPOSURE NO PRIOR TO CONCEPTION AND DURING THIRD TRIMESTER, ONGOING AT
     Route: 064
     Dates: start: 20220125
  9. TIVICAY [Suspect]
     Active Substance: DOLUTEGRAVIR SODIUM
     Dosage: 50 MILLIGRAM
     Route: 064
  10. ISENTRESS [Suspect]
     Active Substance: RALTEGRAVIR POTASSIUM
     Indication: Product used for unknown indication
     Dosage: UNK
     Route: 064
     Dates: start: 20210721, end: 20211228
  11. ISENTRESS [Suspect]
     Active Substance: RALTEGRAVIR POTASSIUM
     Dosage: 800 MILLIGRAM, QD (1 COURSES, EXPOSURE NO PRIOR TO CONCEPTION AND DURING FIRST TRIMESTER), TABLET
     Route: 064
     Dates: start: 20210719, end: 20211228
  12. REYATAZ [Suspect]
     Active Substance: ATAZANAVIR SULFATE
     Indication: Product used for unknown indication
     Dosage: UNK
     Route: 064
     Dates: start: 20211221, end: 20211228
  13. REYATAZ [Suspect]
     Active Substance: ATAZANAVIR SULFATE
     Dosage: 300 MILLIGRAM, QD (1 COURSES, EXPOSURE NO PRIOR TO CONCEPTION AND DURING THIRD TRIMESTER, ONGOING AT
     Route: 064
     Dates: start: 20211229

REACTIONS (5)
  - Renal aplasia [Unknown]
  - Renal dysplasia [Not Recovered/Not Resolved]
  - Single functional kidney [Not Recovered/Not Resolved]
  - Foetal exposure during pregnancy [Recovered/Resolved]
  - Foetal exposure during delivery [Unknown]

NARRATIVE: CASE EVENT DATE: 20220221
